FAERS Safety Report 10378294 (Version 1)
Quarter: 2014Q3

REPORT INFORMATION
  Report Type: Report from Study
  Country: US (occurrence: US)
  Receive Date: 20140812
  Receipt Date: 20140812
  Transmission Date: 20150326
  Serious: Yes (Hospitalization, Other)
  Sender: FDA-Public Use
  Company Number: US-SA-2014SA105734

PATIENT
  Age: 78 Year
  Sex: Female

DRUGS (2)
  1. LANTUS SOLOSTAR [Suspect]
     Active Substance: INSULIN GLARGINE
     Indication: TYPE 2 DIABETES MELLITUS
     Dosage: DOSE:52 UNIT(S)
     Route: 065
     Dates: start: 2013
  2. APIDRA [Suspect]
     Active Substance: INSULIN GLULISINE
     Indication: TYPE 2 DIABETES MELLITUS
     Route: 065

REACTIONS (15)
  - Pallor [Unknown]
  - Hypertension [Unknown]
  - Heart rate increased [Unknown]
  - Hyperglycaemia [Unknown]
  - Contusion [Unknown]
  - Renal failure chronic [Unknown]
  - Tremor [Unknown]
  - Drug administration error [Unknown]
  - Weight increased [Unknown]
  - Cataract operation [Unknown]
  - Hypoglycaemia [Unknown]
  - Hyperhidrosis [Unknown]
  - Palpitations [Unknown]
  - Blood cholesterol increased [Unknown]
  - Drug dose omission [Unknown]

NARRATIVE: CASE EVENT DATE: 2014
